FAERS Safety Report 17278292 (Version 1)
Quarter: 2020Q1

REPORT INFORMATION
  Report Type: Spontaneous
  Country: US (occurrence: US)
  Receive Date: 20200116
  Receipt Date: 20200116
  Transmission Date: 20200409
  Serious: No
  Sender: FDA-Public Use
  Company Number: None

PATIENT
  Age: 11 Year
  Sex: Female
  Weight: 36 kg

DRUGS (1)
  1. CIPRODEX [Suspect]
     Active Substance: CIPROFLOXACIN HYDROCHLORIDE\DEXAMETHASONE
     Indication: EAR INFECTION
     Dosage: ?          QUANTITY:4 DROP(S);?
     Route: 001
     Dates: start: 20200114, end: 20200114

REACTIONS (6)
  - Dysphagia [None]
  - Throat irritation [None]
  - Pruritus [None]
  - Dyspnoea [None]
  - Urticaria [None]
  - Back pain [None]

NARRATIVE: CASE EVENT DATE: 20200114
